FAERS Safety Report 7055285-2 (Version None)
Quarter: 2010Q4

REPORT INFORMATION
  Report Type: 
  Country: None (occurrence: None)
  Receive Date: 20101021
  Receipt Date: 20101012
  Transmission Date: 20110411
  Serious: Yes (Hospitalization)
  Sender: FDA-Public Use
  Company Number: CA-JNJFOC-20101004052

PATIENT
  Sex: Male
  Weight: 86.4 kg

DRUGS (6)
  1. REMICADE [Suspect]
     Indication: CROHN'S DISEASE
     Route: 042
  2. REMICADE [Suspect]
     Route: 042
  3. MESALAMINE [Concomitant]
     Dosage: ALSO PER RECTAL
  4. CORTIFOAM [Concomitant]
     Route: 054
  5. PREDNISONE [Concomitant]
     Dosage: TAPERED DOSE
     Route: 048
  6. IMURAN [Concomitant]
     Route: 048

REACTIONS (3)
  - DIARRHOEA [None]
  - DYSPEPSIA [None]
  - VOMITING [None]
